FAERS Safety Report 18948058 (Version 14)
Quarter: 2024Q2

REPORT INFORMATION
  Report Type: Spontaneous
  Country: US (occurrence: US)
  Receive Date: 20210226
  Receipt Date: 20240417
  Transmission Date: 20240716
  Serious: Yes (Hospitalization, Other)
  Sender: FDA-Public Use
  Company Number: US-PFIZER INC-2018098146

PATIENT
  Age: 68 Year
  Sex: Female
  Weight: 67.12 kg

DRUGS (2)
  1. XELJANZ XR [Suspect]
     Active Substance: TOFACITINIB CITRATE
     Indication: Rheumatoid arthritis
     Dosage: 11 MG
  2. XELJANZ XR [Suspect]
     Active Substance: TOFACITINIB CITRATE
     Dosage: ONCE DAILY

REACTIONS (23)
  - Vertigo [Recovered/Resolved]
  - Breast cancer female [Unknown]
  - Neuropathy peripheral [Not Recovered/Not Resolved]
  - Syncope [Unknown]
  - Knee arthroplasty [Unknown]
  - Memory impairment [Unknown]
  - Depressed mood [Unknown]
  - Confusional state [Unknown]
  - Crying [Unknown]
  - Pain [Unknown]
  - Tremor [Unknown]
  - Disturbance in attention [Unknown]
  - Hypoaesthesia [Not Recovered/Not Resolved]
  - Pain in extremity [Unknown]
  - Migraine [Unknown]
  - Weight bearing difficulty [Unknown]
  - Arthropathy [Unknown]
  - Sensitivity to weather change [Unknown]
  - Peripheral swelling [Unknown]
  - Fall [Unknown]
  - Sensory loss [Unknown]
  - Stress [Unknown]
  - Arthralgia [Unknown]

NARRATIVE: CASE EVENT DATE: 20220101
